FAERS Safety Report 23041898 (Version 1)
Quarter: 2023Q4

REPORT INFORMATION
  Report Type: Spontaneous
  Country: FR (occurrence: FR)
  Receive Date: 20231007
  Receipt Date: 20231007
  Transmission Date: 20240109
  Serious: Yes (Hospitalization, Other)
  Sender: FDA-Public Use
  Company Number: FR-AFSSAPS-PB2023001172

PATIENT
  Age: 75 Year
  Sex: Male

DRUGS (1)
  1. CIPROFLOXACIN [Suspect]
     Active Substance: CIPROFLOXACIN
     Indication: Pyelonephritis acute
     Dosage: 750 MILLIGRAM
     Route: 048
     Dates: start: 20230828, end: 20230904

REACTIONS (3)
  - Psychotic symptom [Recovered/Resolved]
  - Hallucination, auditory [Recovered/Resolved]
  - Suicide attempt [Recovered/Resolved]

NARRATIVE: CASE EVENT DATE: 20230828
